FAERS Safety Report 7312915-5 (Version None)
Quarter: 2011Q1

REPORT INFORMATION
  Report Type: 
  Country: None (occurrence: None)
  Receive Date: 20110224
  Receipt Date: 20110218
  Transmission Date: 20110831
  Serious: Yes (Hospitalization)
  Sender: FDA-Public Use
  Company Number: FI-MERCK-0909FIN00004

PATIENT
  Age: 81 Year
  Sex: Female

DRUGS (1)
  1. FOSAMAX PLUS D [Suspect]
     Indication: OSTEOPOROSIS
     Route: 048
     Dates: start: 20050520, end: 20090524

REACTIONS (2)
  - FEMUR FRACTURE [None]
  - BONE DISORDER [None]
